FAERS Safety Report 9531509 (Version 1)
Quarter: 2013Q3

REPORT INFORMATION
  Report Type: Report from Study
  Country: CA (occurrence: CA)
  Receive Date: 20130918
  Receipt Date: 20130918
  Transmission Date: 20140515
  Serious: Yes (Other)
  Sender: FDA-Public Use
  Company Number: CA-JNJFOC-20130904083

PATIENT
  Age: 32 Year
  Sex: Female
  Weight: 63 kg

DRUGS (5)
  1. REMICADE [Suspect]
     Indication: CROHN^S DISEASE
     Route: 042
     Dates: start: 20130910
  2. REMICADE [Suspect]
     Indication: CROHN^S DISEASE
     Dosage: 0,2,6, THEN ONCE EVERY 8 WEEKS.
     Route: 042
     Dates: start: 20130827
  3. PENTASA [Concomitant]
     Dosage: 8 PILLS PER DAY
     Route: 065
  4. PREDNISONE [Concomitant]
     Route: 065
  5. ESOMEPRAZOLE [Concomitant]
     Route: 065

REACTIONS (5)
  - Hypopnoea [Recovered/Resolved]
  - Infusion related reaction [Recovered/Resolved]
  - Chest discomfort [Recovered/Resolved]
  - Flushing [Recovered/Resolved]
  - Feeling hot [Recovered/Resolved]
